FAERS Safety Report 11010861 (Version 2)
Quarter: 2015Q2

REPORT INFORMATION
  Report Type: Report from Study
  Country: CN (occurrence: CN)
  Receive Date: 20150410
  Receipt Date: 20150415
  Transmission Date: 20150821
  Serious: Yes (Other)
  Sender: FDA-Public Use
  Company Number: CN-ASTELLAS-2015JP007804

PATIENT

DRUGS (2)
  1. MICAFUNGIN [Suspect]
     Active Substance: MICAFUNGIN
     Indication: FUNGAL INFECTION
     Dosage: UNK UNK, ONCE DAILY, DISSOLVED IN 230 ML NORMAL SALINE
     Route: 041
  2. BLINDED MICAFUNGIN [Suspect]
     Active Substance: MICAFUNGIN

REACTIONS (1)
  - Nephropathy toxic [Unknown]
